FAERS Safety Report 9020993 (Version 1)
Quarter: 2013Q1

REPORT INFORMATION
  Report Type: Spontaneous
  Country: US (occurrence: US)
  Receive Date: 20130119
  Receipt Date: 20130119
  Transmission Date: 20140127
  Serious: No
  Sender: FDA-Public Use
  Company Number: US-ALLERGAN-1204719US

PATIENT
  Sex: Female

DRUGS (2)
  1. BOTOX COSMETIC [Suspect]
     Indication: SKIN WRINKLING
     Dosage: UNK
     Route: 030
     Dates: start: 20120328, end: 20120328
  2. BOTOX? [Concomitant]
     Indication: HYPERHIDROSIS
     Dosage: UNK
     Route: 030

REACTIONS (1)
  - Muscular weakness [Unknown]
